FAERS Safety Report 10955147 (Version 1)
Quarter: 2015Q1

REPORT INFORMATION
  Report Type: Spontaneous
  Country: US (occurrence: US)
  Receive Date: 20150326
  Receipt Date: 20150326
  Transmission Date: 20150721
  Serious: Yes (Other)
  Sender: FDA-Public Use
  Company Number: PHHY2015US031781

PATIENT
  Age: 57 Year
  Sex: Male

DRUGS (2)
  1. PENICILLIN G SODIUM. [Suspect]
     Active Substance: PENICILLIN G SODIUM
     Indication: NEUROSYPHILIS
     Dosage: 3 MILLION UNITS, Q4H
     Route: 042
  2. PENICILLIN G BENZATHINE [Concomitant]
     Active Substance: PENICILLIN G BENZATHINE
     Indication: LATENT SYPHILIS
     Dosage: 2.4 MILLION UNITS, UNK
     Route: 030

REACTIONS (12)
  - Cerebrovascular accident [Unknown]
  - Body temperature increased [Unknown]
  - Blood pressure increased [Unknown]
  - Dysarthria [Unknown]
  - Respiratory rate increased [Unknown]
  - Paralysis [Unknown]
  - Hyperhidrosis [Unknown]
  - Heart rate increased [Unknown]
  - Leukocytosis [Unknown]
  - Cerebral infarction [Unknown]
  - Jarisch-Herxheimer reaction [Unknown]
  - Generalised tonic-clonic seizure [Unknown]
